FAERS Safety Report 6501863-6 (Version None)
Quarter: 2009Q4

REPORT INFORMATION
  Report Type: 
  Country: None (occurrence: None)
  Receive Date: 20091216
  Receipt Date: 20090603
  Transmission Date: 20100525
  Serious: Yes (Other)
  Sender: FDA-Public Use
  Company Number: BR-MEDIMMUNE-MEDI-0009856

PATIENT
  Sex: Male
  Weight: 2.01 kg

DRUGS (1)
  1. SYNAGIS [Suspect]
     Dates: start: 20090509

REACTIONS (1)
  - INTESTINAL OPERATION [None]
